FAERS Safety Report 9031592 (Version 1)
Quarter: 2013Q1

REPORT INFORMATION
  Report Type: Spontaneous
  Country: US (occurrence: US)
  Receive Date: 20130124
  Receipt Date: 20130124
  Transmission Date: 20140127
  Serious: Yes (Other)
  Sender: FDA-Public Use
  Company Number: US-ROCHE-1179752

PATIENT
  Age: 68 Year
  Sex: Male
  Weight: 108.51 kg

DRUGS (1)
  1. XOLAIR [Suspect]
     Indication: ASTHMA
     Route: 058
     Dates: start: 20121228

REACTIONS (2)
  - Wheezing [Unknown]
  - Mouth ulceration [Unknown]
